FAERS Safety Report 14214333 (Version 2)
Quarter: 2017Q4

REPORT INFORMATION
  Report Type: Report from Study
  Country: US (occurrence: US)
  Receive Date: 20171122
  Receipt Date: 20171206
  Transmission Date: 20180321
  Serious: Yes (Hospitalization, Other)
  Sender: FDA-Public Use
  Company Number: US-TAKEDA-2017TUS024382

PATIENT
  Sex: Male

DRUGS (1)
  1. PONATINIB [Suspect]
     Active Substance: PONATINIB
     Indication: ACUTE LYMPHOCYTIC LEUKAEMIA (IN REMISSION)
     Dosage: 30 MG, QD
     Route: 048
     Dates: start: 20171031

REACTIONS (8)
  - Weight decreased [Unknown]
  - Respiratory failure [Unknown]
  - Constipation [Unknown]
  - Dysphagia [Unknown]
  - Hepatic failure [Unknown]
  - Pulmonary oedema [Unknown]
  - Cardiac failure congestive [Unknown]
  - Pleural effusion [Unknown]
